FAERS Safety Report 24381091 (Version 2)
Quarter: 2024Q4

REPORT INFORMATION
  Report Type: Spontaneous
  Country: IT (occurrence: IT)
  Receive Date: 20240930
  Receipt Date: 20241009
  Transmission Date: 20250115
  Serious: Yes (Life-Threatening, Hospitalization)
  Sender: TEVA
  Company Number: IT-TEVA-VS-3247697

PATIENT
  Age: 6 Year
  Sex: Male

DRUGS (7)
  1. GABAPENTIN [Suspect]
     Active Substance: GABAPENTIN
     Indication: Status dystonicus
     Route: 065
  2. CLONAZEPAM [Suspect]
     Active Substance: CLONAZEPAM
     Indication: Status dystonicus
     Route: 065
  3. TETRABENAZINE [Suspect]
     Active Substance: TETRABENAZINE
     Indication: Status dystonicus
     Route: 065
  4. MIDAZOLAM [Concomitant]
     Active Substance: MIDAZOLAM
     Indication: Sedation
     Route: 042
  5. MIDAZOLAM [Concomitant]
     Active Substance: MIDAZOLAM
     Indication: Sedation
     Dosage: UP TO
     Route: 042
  6. TRIHEXYPHENIDYL [Suspect]
     Active Substance: TRIHEXYPHENIDYL
     Indication: Status dystonicus
     Route: 065
  7. DEXMEDETOMIDINE [Concomitant]
     Active Substance: DEXMEDETOMIDINE
     Indication: Sedation
     Dosage: UP TO
     Route: 042

REACTIONS (1)
  - Drug ineffective [Unknown]
